FAERS Safety Report 21507950 (Version 3)
Quarter: 2022Q4

REPORT INFORMATION
  Report Type: Report from Study
  Country: IT (occurrence: IT)
  Receive Date: 20221026
  Receipt Date: 20221130
  Transmission Date: 20230113
  Serious: Yes (Other)
  Sender: FDA-Public Use
  Company Number: IT-INCYTE CORPORATION-2022IN009523

PATIENT
  Age: 65 Year
  Sex: Female

DRUGS (1)
  1. PONATINIB [Suspect]
     Active Substance: PONATINIB
     Indication: Chronic myeloid leukaemia
     Dosage: 15 MILLIGRAM, QD
     Route: 065
     Dates: start: 20210406, end: 20220522

REACTIONS (5)
  - Thrombocytopenia [Recovered/Resolved]
  - Neutropenia [Unknown]
  - Emphysema [Recovered/Resolved]
  - Hepatomegaly [Recovered/Resolved]
  - Splenomegaly [Recovered/Resolved]

NARRATIVE: CASE EVENT DATE: 20210511
